FAERS Safety Report 18758370 (Version 3)
Quarter: 2021Q2

REPORT INFORMATION
  Report Type: Spontaneous
  Country: US (occurrence: US)
  Receive Date: 20210119
  Receipt Date: 20210617
  Transmission Date: 20210717
  Serious: Yes (Hospitalization)
  Sender: FDA-Public Use
  Company Number: US-PFM-2021-00683

PATIENT
  Age: 4 Month
  Sex: Female
  Weight: 6.3 kg

DRUGS (2)
  1. HEMANGEOL [Suspect]
     Active Substance: PROPRANOLOL HYDROCHLORIDE
     Indication: INFANTILE HAEMANGIOMA
     Dosage: 1.05 ML, TID (3/DAY)
     Route: 065
     Dates: start: 202012
  2. HEMANGEOL [Suspect]
     Active Substance: PROPRANOLOL HYDROCHLORIDE
     Indication: OFF LABEL USE
     Dosage: 3 MG/KG/DAY (1.45 ML, TID (3/DAY))
     Route: 065
     Dates: end: 202101

REACTIONS (4)
  - Haemangioma [Recovered/Resolved]
  - Condition aggravated [Unknown]
  - Product use issue [Unknown]
  - Off label use [Unknown]

NARRATIVE: CASE EVENT DATE: 202012
